FAERS Safety Report 11618700 (Version 1)
Quarter: 2015Q4

REPORT INFORMATION
  Report Type: Spontaneous
  Country: GB (occurrence: GB)
  Receive Date: 20151012
  Receipt Date: 20151012
  Transmission Date: 20160304
  Serious: Yes (Other)
  Sender: FDA-Public Use
  Company Number: GB-HOSPIRA-3031886

PATIENT
  Age: 9 Month
  Sex: Male
  Weight: 10 kg

DRUGS (1)
  1. GENTAMICIN SULFATE. [Suspect]
     Active Substance: GENTAMICIN SULFATE
     Indication: TENDON SHEATH DISORDER
     Dosage: STAT
     Route: 042

REACTIONS (2)
  - Neuromuscular blockade [Recovered/Resolved]
  - Respiratory distress [Recovered/Resolved]
